FAERS Safety Report 9134968 (Version 2)
Quarter: 2013Q2

REPORT INFORMATION
  Report Type: Spontaneous
  Country: AU (occurrence: AU)
  Receive Date: 20130304
  Receipt Date: 20130403
  Transmission Date: 20140414
  Serious: Yes (Other)
  Sender: FDA-Public Use
  Company Number: AU-GENZYME-CAMP-1002760

PATIENT
  Age: 41 Year
  Sex: Female

DRUGS (2)
  1. CAMPATH [Suspect]
     Indication: T-CELL PROLYMPHOCYTIC LEUKAEMIA
     Dosage: 30 MG, 3X/W
     Route: 058
     Dates: start: 20110223, end: 20110420
  2. CAMPATH [Suspect]
     Dosage: 30 MG, 3X/W
     Route: 058
     Dates: start: 20130318

REACTIONS (2)
  - Skin infection [Not Recovered/Not Resolved]
  - T-cell prolymphocytic leukaemia [Not Recovered/Not Resolved]
